FAERS Safety Report 23575777 (Version 1)
Quarter: 2024Q1

REPORT INFORMATION
  Report Type: Spontaneous
  Country: CA (occurrence: CA)
  Receive Date: 20240228
  Receipt Date: 20240228
  Transmission Date: 20240409
  Serious: Yes (Hospitalization, Disabling, Other)
  Sender: FDA-Public Use
  Company Number: CA-B.Braun Medical Inc.-2153792

PATIENT
  Age: 72 Year
  Sex: Male

DRUGS (21)
  1. CALCIUM GLUCONATE [Suspect]
     Active Substance: CALCIUM GLUCONATE
  2. ADVAIR HFA [Suspect]
     Active Substance: FLUTICASONE PROPIONATE\SALMETEROL XINAFOATE
  3. GOSERELIN [Suspect]
     Active Substance: GOSERELIN
  4. VENTOLIN [Suspect]
     Active Substance: ALBUTEROL SULFATE
  5. SULFAMETHOXAZOLE\TRIMETHOPRIM [Suspect]
     Active Substance: SULFAMETHOXAZOLE\TRIMETHOPRIM
  6. EDETATE CALCIUM DISODIUM [Suspect]
     Active Substance: EDETATE CALCIUM DISODIUM
  7. SODIUM BICARBONATE [Suspect]
     Active Substance: SODIUM BICARBONATE
  8. SODIUM BICARBONATE\SODIUM CHLORIDE [Suspect]
     Active Substance: SODIUM BICARBONATE\SODIUM CHLORIDE
  9. RAMIPRIL [Suspect]
     Active Substance: RAMIPRIL
  10. PREDNISONE [Suspect]
     Active Substance: PREDNISONE
  11. OMNARIS [Suspect]
     Active Substance: CICLESONIDE
  12. METHOTREXATE [Suspect]
     Active Substance: METHOTREXATE
  13. LANSOPRAZOLE [Suspect]
     Active Substance: LANSOPRAZOLE
  14. FOSAMAX [Suspect]
     Active Substance: ALENDRONATE SODIUM
  15. FOLIC ACID [Suspect]
     Active Substance: FOLIC ACID
  16. FLUTICASONE [Suspect]
     Active Substance: FLUTICASONE
  17. ERGOCALCIFEROL [Suspect]
     Active Substance: ERGOCALCIFEROL
  18. CYCLOPHOSPHAMIDE [Suspect]
     Active Substance: CYCLOPHOSPHAMIDE
  19. BICALUTAMIDE [Suspect]
     Active Substance: BICALUTAMIDE
  20. ALENDRONATE SODIUM [Suspect]
     Active Substance: ALENDRONATE SODIUM
  21. ALBUTEROL [Suspect]
     Active Substance: ALBUTEROL

REACTIONS (35)
  - Airway remodelling [Unknown]
  - Off label use [Unknown]
  - Wall motion score index abnormal [Unknown]
  - Viral infection [Unknown]
  - Ventricular hypokinesia [Unknown]
  - Respiratory tract infection [Unknown]
  - Respiratory symptom [Unknown]
  - Renal disorder [Unknown]
  - Prostate cancer [Unknown]
  - Productive cough [Unknown]
  - Pneumonia [Unknown]
  - Obstructive airways disorder [Unknown]
  - Obesity [Unknown]
  - Nodule [Unknown]
  - Nasal polyps [Unknown]
  - Microangiopathy [Unknown]
  - Memory impairment [Unknown]
  - Lymphopenia [Unknown]
  - Lacrimation increased [Unknown]
  - Hypertension [Unknown]
  - Haemorrhage [Unknown]
  - Haematuria [Unknown]
  - Eosinophilic pneumonia [Unknown]
  - Eosinophilic myocarditis [Unknown]
  - Eosinophilic granulomatosis with polyangiitis [Unknown]
  - Eosinophil count increased [Unknown]
  - Eosinophil count decreased [Unknown]
  - Confusional state [Unknown]
  - Condition aggravated [Unknown]
  - Chronic sinusitis [Unknown]
  - Central nervous system mass [Unknown]
  - Cardiac septal defect [Unknown]
  - Blood immunoglobulin E increased [Unknown]
  - Atopy [Unknown]
  - Asthma [Unknown]
